FAERS Safety Report 16132330 (Version 1)
Quarter: 2019Q1

REPORT INFORMATION
  Report Type: Spontaneous
  Country: US (occurrence: US)
  Receive Date: 20190329
  Receipt Date: 20190329
  Transmission Date: 20190418
  Serious: No
  Sender: FDA-Public Use
  Company Number: US-BRISTOL-MYERS SQUIBB COMPANY-BMS-2019-030734

PATIENT
  Sex: Female

DRUGS (1)
  1. SPRYCEL [Suspect]
     Active Substance: DASATINIB
     Indication: BONE MARROW TRANSPLANT
     Dosage: 100 MILLIGRAM, QD
     Route: 048
     Dates: start: 20170220

REACTIONS (1)
  - Product use in unapproved indication [Unknown]
